FAERS Safety Report 15222478 (Version 11)
Quarter: 2020Q1

REPORT INFORMATION
  Report Type: Spontaneous
  Country: CA (occurrence: CA)
  Receive Date: 20180731
  Receipt Date: 20200124
  Transmission Date: 20200409
  Serious: Yes (Other)
  Sender: FDA-Public Use
  Company Number: CA-CELLTRION INC.-2018CA019449

PATIENT

DRUGS (25)
  1. INFLECTRA [Suspect]
     Active Substance: INFLIXIMAB-DYYB
     Dosage: 10 MG/KG Q 0,2,6 WEEKS THEN EVERY 8 WEEKS
     Route: 042
     Dates: start: 20180922, end: 20190620
  2. INFLECTRA [Suspect]
     Active Substance: INFLIXIMAB-DYYB
     Dosage: 10 MG/KG EVERY 8 WEEKS
     Route: 042
     Dates: start: 20181107
  3. PENTASA [Concomitant]
     Active Substance: MESALAMINE
     Indication: SUPPLEMENTATION THERAPY
     Dosage: UNK, AS NEEDED
     Route: 054
     Dates: start: 201709
  4. INFLECTRA [Suspect]
     Active Substance: INFLIXIMAB-DYYB
     Dosage: 10 MG/KG EVERY 8 WEEKS
     Route: 042
     Dates: start: 20180922, end: 20190620
  5. INFLECTRA [Suspect]
     Active Substance: INFLIXIMAB-DYYB
     Dosage: 10 MG/KG EVERY 8 WEEKS
     Route: 042
     Dates: start: 20190622
  6. INFLECTRA [Suspect]
     Active Substance: INFLIXIMAB-DYYB
     Dosage: 640 MG, EVERY 8 WEEKS (10 MG/KG)
     Route: 042
     Dates: start: 20191009
  7. INFLECTRA [Suspect]
     Active Substance: INFLIXIMAB-DYYB
     Dosage: 318 MG 0, 2, 6 WEEKS THEN EVERY 8 WEEKS
     Route: 042
     Dates: start: 20180301
  8. INFLECTRA [Suspect]
     Active Substance: INFLIXIMAB-DYYB
     Dosage: 10 MG/KG EVERY 8 WEEKS
     Route: 042
     Dates: start: 20190424
  9. PENTASA [Concomitant]
     Active Substance: MESALAMINE
     Dosage: 8 DF, (50 MG)
     Route: 048
     Dates: start: 2014
  10. PENTASA [Concomitant]
     Active Substance: MESALAMINE
     Dosage: UNK, AS NEEDED
     Route: 054
  11. INFLECTRA [Suspect]
     Active Substance: INFLIXIMAB-DYYB
     Dosage: 318 MG 0, 2, 6 WEEKS THEN EVERY 8 WEEKS
     Route: 042
     Dates: start: 20180328
  12. INFLECTRA [Suspect]
     Active Substance: INFLIXIMAB-DYYB
     Dosage: 318 MG 0, 2, 6 WEEKS THEN EVERY 8 WEEKS
     Route: 042
     Dates: start: 20180718, end: 20180718
  13. CORTIMENT [Concomitant]
     Dosage: 9 MG, 1X/DAY
     Route: 048
     Dates: start: 201709
  14. VYVANSE [Concomitant]
     Active Substance: LISDEXAMFETAMINE DIMESYLATE
     Dosage: UNK, DAILY
     Route: 048
  15. INFLECTRA [Suspect]
     Active Substance: INFLIXIMAB-DYYB
     Dosage: 640 MG, EVERY 8 WEEKS (10 MG/KG)
     Route: 042
     Dates: start: 20191009
  16. FLOVENT [Concomitant]
     Active Substance: FLUTICASONE PROPIONATE
     Dosage: 125 MG, AS NEEDED
     Route: 065
  17. PROFERRIN [Concomitant]
     Active Substance: IRON
     Dosage: 4 DF, DAILY (BID, PRN)
     Route: 048
  18. INFLECTRA [Suspect]
     Active Substance: INFLIXIMAB-DYYB
     Dosage: 318 MG 0, 2, 6 WEEKS THEN EVERY 8 WEEKS
     Route: 042
     Dates: start: 20180523
  19. INFLECTRA [Suspect]
     Active Substance: INFLIXIMAB-DYYB
     Dosage: 10 MG/KG, EVERY 8 WEEKS
     Route: 042
     Dates: start: 20190622
  20. INFLECTRA [Suspect]
     Active Substance: INFLIXIMAB-DYYB
     Dosage: 640 MG, EVERY 8 WEEKS
     Route: 042
     Dates: start: 20200114
  21. INFLECTRA [Suspect]
     Active Substance: INFLIXIMAB-DYYB
     Indication: COLITIS ULCERATIVE
     Dosage: 318 MG 0, 2, 6 WEEKS THEN EVERY 8 WEEKS
     Route: 042
     Dates: start: 20180213, end: 20180718
  22. INFLECTRA [Suspect]
     Active Substance: INFLIXIMAB-DYYB
     Dosage: 10 MG/KG, EVERY 8 WEEKS
     Route: 042
     Dates: start: 20180912
  23. INFLECTRA [Suspect]
     Active Substance: INFLIXIMAB-DYYB
     Dosage: 640 MG, EVERY 8 WEEKS (10 MG/KG)
     Route: 042
     Dates: start: 20190814
  24. INFLECTRA [Suspect]
     Active Substance: INFLIXIMAB-DYYB
     Dosage: 640 MG, EVERY 8 WEEKS
     Route: 042
     Dates: start: 20191204
  25. PROFERRIN [Concomitant]
     Active Substance: IRON
     Dosage: 4 DF, AS NEEDED (BID UP TO 4 TABLETS QD PRN)
     Route: 048

REACTIONS (7)
  - Hordeolum [Not Recovered/Not Resolved]
  - Condition aggravated [Recovering/Resolving]
  - Mucous stools [Unknown]
  - Malaise [Unknown]
  - Rectal haemorrhage [Not Recovered/Not Resolved]
  - Off label use [Unknown]
  - Heart rate increased [Unknown]

NARRATIVE: CASE EVENT DATE: 20180328
